FAERS Safety Report 6371268-X (Version None)
Quarter: 2009Q3

REPORT INFORMATION
  Report Type: 
  Country: None (occurrence: None)
  Receive Date: 20090923
  Receipt Date: 20070821
  Transmission Date: 20100115
  Serious: No
  Sender: FDA-Public Use
  Company Number: US-ASTRAZENECA-2007UW02099

PATIENT
  Age: 44 Year
  Sex: Female
  Weight: 113.4 kg

DRUGS (23)
  1. SEROQUEL [Suspect]
     Indication: ANXIETY
     Route: 048
     Dates: start: 19970101, end: 20060101
  2. SEROQUEL [Suspect]
     Dosage: 25-400 MG
     Route: 048
     Dates: start: 19990202
  3. RISPERDAL [Concomitant]
     Route: 048
     Dates: start: 20041128
  4. RISPERDAL [Concomitant]
     Dates: start: 20070101
  5. LAMICTAL [Concomitant]
     Route: 048
     Dates: start: 20060613
  6. CELEXA [Concomitant]
     Route: 048
     Dates: start: 19990729
  7. TRAZODONE [Concomitant]
     Route: 048
     Dates: start: 20060613
  8. ABILIFY [Concomitant]
     Route: 048
     Dates: start: 20060613
  9. LEVOTHYROXINE SODIUM [Concomitant]
     Route: 048
     Dates: start: 20060613
  10. PROPRANOLOL [Concomitant]
     Route: 048
     Dates: start: 19990202
  11. ASPIRIN [Concomitant]
     Route: 048
     Dates: start: 20041128
  12. NAVANE [Concomitant]
     Dates: start: 19940922
  13. ZOLOFT [Concomitant]
     Dosage: THREE TABS AM
     Dates: start: 19940922
  14. ATIVAN [Concomitant]
     Dates: start: 19940922
  15. COGENTIN [Concomitant]
     Dates: start: 19940922
  16. PREMARIN [Concomitant]
     Dates: start: 19940922
  17. NEURONTIN [Concomitant]
     Dates: start: 20020903
  18. METOPROLOL TARTRATE [Concomitant]
     Route: 048
     Dates: start: 20041128
  19. AMBIEN [Concomitant]
     Dates: start: 19990202
  20. COLACE [Concomitant]
     Route: 048
     Dates: start: 20041128
  21. DEPAKOTE [Concomitant]
     Dosage: 1000-1500 MG
     Dates: start: 19990202
  22. IMITREX [Concomitant]
     Dates: start: 20020903
  23. HYDROXYCHLOROQUINE [Concomitant]
     Dates: start: 20020903

REACTIONS (4)
  - HYPERTENSION [None]
  - THYROID DISORDER [None]
  - TYPE 1 DIABETES MELLITUS [None]
  - TYPE 2 DIABETES MELLITUS [None]
